FAERS Safety Report 22976744 (Version 2)
Quarter: 2024Q2

REPORT INFORMATION
  Report Type: Report from Study
  Country: US (occurrence: US)
  Receive Date: 20230925
  Receipt Date: 20240419
  Transmission Date: 20240715
  Serious: No
  Sender: FDA-Public Use
  Company Number: US-002147023-NVSC2023US202771

PATIENT
  Sex: Male

DRUGS (1)
  1. ENTRESTO [Suspect]
     Active Substance: SACUBITRIL\VALSARTAN
     Indication: Product used for unknown indication
     Dosage: UNK
     Route: 065

REACTIONS (9)
  - Illness [Unknown]
  - General physical health deterioration [Unknown]
  - Impaired driving ability [Unknown]
  - Dysstasia [Unknown]
  - Scoliosis [Unknown]
  - Fall [Unknown]
  - Joint injury [Unknown]
  - Limb injury [Unknown]
  - Skin exfoliation [Unknown]
